FAERS Safety Report 17089169 (Version 1)
Quarter: 2019Q4

REPORT INFORMATION
  Report Type: Spontaneous
  Country: FR (occurrence: FR)
  Receive Date: 20191128
  Receipt Date: 20191128
  Transmission Date: 20200122
  Serious: Yes (Hospitalization)
  Sender: FDA-Public Use
  Company Number: FR-ELI_LILLY_AND_COMPANY-FR201910014844

PATIENT
  Age: 67 Year
  Sex: Male

DRUGS (5)
  1. TALTZ [Suspect]
     Active Substance: IXEKIZUMAB
     Indication: PSORIASIS
     Dosage: 80 MG, OTHER, EVERY 2 WEEKS
     Route: 065
     Dates: start: 20190313, end: 20190424
  2. PRIMPERAN [Concomitant]
     Active Substance: METOCLOPRAMIDE HYDROCHLORIDE
     Indication: PAIN
  3. DOLIPRANE [Concomitant]
     Active Substance: ACETAMINOPHEN
     Indication: PAIN
  4. EXJADE [Concomitant]
     Active Substance: DEFERASIROX
     Indication: PRODUCT USED FOR UNKNOWN INDICATION
  5. LANSOPRAZOLE. [Concomitant]
     Active Substance: LANSOPRAZOLE
     Indication: PRODUCT USED FOR UNKNOWN INDICATION

REACTIONS (24)
  - Blood creatinine increased [Unknown]
  - C-reactive protein increased [Unknown]
  - Pleural effusion [Unknown]
  - Coxsackie myocarditis [Unknown]
  - Vomiting [Unknown]
  - Troponin increased [Unknown]
  - Pericardial effusion [Unknown]
  - Dehydration [Unknown]
  - Cough [Unknown]
  - Organising pneumonia [Recovering/Resolving]
  - Systemic inflammatory response syndrome [Unknown]
  - Gastroenteritis [Unknown]
  - Dyspnoea [Unknown]
  - Pyrexia [Unknown]
  - White blood cell count decreased [Unknown]
  - Hypoalbuminaemia [Unknown]
  - Anaemia [Unknown]
  - Lung consolidation [Unknown]
  - Chest pain [Unknown]
  - Musculoskeletal stiffness [Unknown]
  - Angina unstable [Unknown]
  - Glomerular filtration rate decreased [Unknown]
  - Hypergammaglobulinaemia [Unknown]
  - Acute kidney injury [Unknown]

NARRATIVE: CASE EVENT DATE: 201803
